FAERS Safety Report 24751463 (Version 2)
Quarter: 2025Q1

REPORT INFORMATION
  Report Type: Spontaneous
  Country: PL (occurrence: PL)
  Receive Date: 20241219
  Receipt Date: 20250207
  Transmission Date: 20250408
  Serious: Yes (Death, Other)
  Sender: CELLTRION
  Company Number: PL-ROCHE-3577508

PATIENT

DRUGS (5)
  1. BEVACIZUMAB [Suspect]
     Active Substance: BEVACIZUMAB
     Indication: Hepatocellular carcinoma
     Route: 042
     Dates: start: 20240119, end: 20240322
  2. TECENTRIQ [Suspect]
     Active Substance: ATEZOLIZUMAB
     Indication: Hepatocellular carcinoma
     Route: 042
     Dates: start: 20240119, end: 20240322
  3. ATORVASTATIN [Concomitant]
     Active Substance: ATORVASTATIN
  4. OMEPRAZOLE [Concomitant]
     Active Substance: OMEPRAZOLE
  5. ASARIS [Concomitant]

REACTIONS (8)
  - Death [Fatal]
  - Oesophageal varices haemorrhage [Fatal]
  - Coma [Unknown]
  - Upper gastrointestinal haemorrhage [Unknown]
  - Alanine aminotransferase decreased [Unknown]
  - Aspartate aminotransferase decreased [Unknown]
  - Abdominal pain upper [Unknown]
  - Intentional product use issue [Unknown]

NARRATIVE: CASE EVENT DATE: 20240201
